FAERS Safety Report 5125383-9 (Version None)
Quarter: 2006Q4

REPORT INFORMATION
  Report Type: 
  Country: None (occurrence: None)
  Receive Date: 20061011
  Receipt Date: 20060927
  Transmission Date: 20070319
  Serious: Yes (Other)
  Sender: FDA-Public Use
  Company Number: PHEH2006US12223

PATIENT

DRUGS (1)
  1. GLEEVEC [Suspect]
     Route: 048

REACTIONS (1)
  - AGRANULOCYTOSIS [None]
